FAERS Safety Report 10581318 (Version 1)
Quarter: 2014Q4

REPORT INFORMATION
  Report Type: Spontaneous
  Country: US (occurrence: None)
  Receive Date: 20141110
  Receipt Date: 20141110
  Transmission Date: 20150529
  Serious: Yes (Hospitalization, Other)
  Sender: FDA-Public Use
  Company Number: 001826444A

PATIENT
  Age: 16 Year
  Sex: Male

DRUGS (1)
  1. PROACTIV PLUS SKIN PURIFYING MASK [Suspect]
     Active Substance: SULFUR
     Indication: ACNE
     Dosage: TWICE DAILY DERMAL
     Dates: start: 20140815, end: 20140922

REACTIONS (4)
  - Scar [None]
  - Swelling face [None]
  - Wound infection staphylococcal [None]
  - Furuncle [None]

NARRATIVE: CASE EVENT DATE: 20140922
